FAERS Safety Report 14328866 (Version 7)
Quarter: 2018Q3

REPORT INFORMATION
  Report Type: Report from Study
  Country: DE (occurrence: DE)
  Receive Date: 20171227
  Receipt Date: 20180730
  Transmission Date: 20181010
  Serious: Yes (Hospitalization)
  Sender: FDA-Public Use
  Company Number: DE-PFIZER INC-2017546050

PATIENT
  Age: 77 Year
  Sex: Male
  Weight: 58 kg

DRUGS (12)
  1. ALDACTONE [Concomitant]
     Active Substance: SPIRONOLACTONE
     Indication: CARDIAC FAILURE
     Dosage: 25 MG, 1X/DAY
     Route: 048
     Dates: start: 20171027, end: 20171108
  2. TOREM [Concomitant]
     Active Substance: TORSEMIDE
     Dosage: 5 MG, 1X/DAY
     Route: 048
     Dates: start: 20171108
  3. OXYGEN. [Concomitant]
     Active Substance: OXYGEN
     Indication: CHRONIC OBSTRUCTIVE PULMONARY DISEASE
     Dosage: 1 L/MIN, EVERY DAY
     Route: 055
     Dates: start: 20171027
  4. TOREM [Concomitant]
     Active Substance: TORSEMIDE
     Indication: PERIPHERAL ARTERIAL OCCLUSIVE DISEASE
     Dosage: 15 MG, 1X/DAY
     Route: 048
     Dates: start: 20171027, end: 20171107
  5. GLYCOPYRRONIUM [Concomitant]
     Active Substance: GLYCOPYRRONIUM
     Indication: CHRONIC OBSTRUCTIVE PULMONARY DISEASE
     Dosage: 43 UG, 1X/DAY
     Route: 048
  6. METOCLOPRAMIDE. [Concomitant]
     Active Substance: METOCLOPRAMIDE
     Indication: PROPHYLAXIS
     Dosage: 40 UG, UNK
     Route: 048
     Dates: start: 20171006
  7. CARBOPLATIN. [Suspect]
     Active Substance: CARBOPLATIN
     Indication: NON-SMALL CELL LUNG CANCER
     Dosage: 5 MG X MIN/ML
     Route: 041
     Dates: start: 20171006, end: 20171006
  8. ABRAXANE [Suspect]
     Active Substance: PACLITAXEL
     Indication: NON-SMALL CELL LUNG CANCER
     Dosage: 100 MG/M2, UNK
     Route: 041
     Dates: start: 20171006, end: 20171013
  9. ASPIRIN. [Concomitant]
     Active Substance: ASPIRIN
     Indication: PERIPHERAL ARTERIAL OCCLUSIVE DISEASE
     Dosage: 100 MG, 1X/DAY
     Route: 048
  10. KALINOR BT [Concomitant]
     Active Substance: POTASSIUM CARBONATE\POTASSIUM CITRATE
     Indication: HYPOKALAEMIA
     Dosage: 1.65 MEQ, 1X/DAY
     Dates: start: 20171027, end: 20171108
  11. INDACATEROL [Concomitant]
     Active Substance: INDACATEROL
     Indication: CHRONIC OBSTRUCTIVE PULMONARY DISEASE
     Dosage: 85 UG, 1X/DAY
     Route: 048
  12. SIMVASTATIN. [Concomitant]
     Active Substance: SIMVASTATIN
     Indication: PERIPHERAL ARTERIAL OCCLUSIVE DISEASE
     Dosage: 40 UG, 1X/DAY
     Route: 048

REACTIONS (5)
  - Leukopenia [Recovered/Resolved]
  - Dehydration [Recovered/Resolved]
  - Hypokalaemia [Recovered/Resolved]
  - Pneumonia [Recovered/Resolved]
  - Diarrhoea [Recovered/Resolved]

NARRATIVE: CASE EVENT DATE: 20171013
